FAERS Safety Report 17876892 (Version 1)
Quarter: 2020Q2

REPORT INFORMATION
  Report Type: Report from Study
  Country: US (occurrence: US)
  Receive Date: 20200609
  Receipt Date: 20200609
  Transmission Date: 20200714
  Serious: Yes (Death)
  Sender: FDA-Public Use
  Company Number: US-ROCHE-2614457

PATIENT
  Age: 67 Year
  Sex: Female

DRUGS (5)
  1. RITUXIMAB. [Suspect]
     Active Substance: RITUXIMAB
     Indication: CRYOGLOBULINAEMIA
     Route: 042
  2. VENCLEXTA [Suspect]
     Active Substance: VENETOCLAX
     Indication: CRYOGLOBULINAEMIA
     Dosage: TAKE 4 TABLET(S) BY MOUTH DAILY
     Route: 048
     Dates: start: 20200410
  3. BORTEZOMIB. [Concomitant]
     Active Substance: BORTEZOMIB
  4. VENCLEXTA [Suspect]
     Active Substance: VENETOCLAX
     Indication: B-CELL LYMPHOMA
  5. VENCLEXTA [Suspect]
     Active Substance: VENETOCLAX
     Indication: MONOCLONAL GAMMOPATHY

REACTIONS (1)
  - COVID-19 [Fatal]

NARRATIVE: CASE EVENT DATE: 20200530
